FAERS Safety Report 6747220-9 (Version None)
Quarter: 2010Q2

REPORT INFORMATION
  Report Type: 
  Country: None (occurrence: None)
  Receive Date: 20100528
  Receipt Date: 20100519
  Transmission Date: 20101027
  Serious: Yes (Death, Other)
  Sender: FDA-Public Use
  Company Number: DE-JNJFOC-20100509076

PATIENT
  Sex: Male

DRUGS (1)
  1. DORIBAX [Suspect]
     Indication: DRUG USE FOR UNKNOWN INDICATION
     Dosage: TOTAL DOSE: 1500 MG PER DAY
     Route: 041

REACTIONS (2)
  - PSEUDOMONAS INFECTION [None]
  - PULMONARY SEPSIS [None]
